FAERS Safety Report 8872402 (Version 1)
Quarter: 2012Q4

REPORT INFORMATION
  Report Type: 
  Country: US (occurrence: US)
  Receive Date: 20121026
  Receipt Date: 20121026
  Transmission Date: 20130627
  Serious: No
  Sender: FDA-Public Use
  Company Number: US-AMGEN-USASP2012049638

PATIENT
  Age: 56 Year
  Sex: Female

DRUGS (7)
  1. ENBREL [Suspect]
     Indication: ANKYLOSING SPONDYLITIS
     Dosage: 50 mg, qwk
     Route: 058
     Dates: start: 20120301
  2. LIPITOR [Concomitant]
     Dosage: 10 mg, UNK
  3. LYRICA [Concomitant]
     Dosage: 100 mg, UNK
  4. SYNTHROID [Concomitant]
     Dosage: 100 mug, UNK
  5. TRAMADOL HCL [Concomitant]
     Dosage: 50 mg, UNK
  6. METFORMIN HCL [Concomitant]
     Dosage: 500 mg, UNK
  7. METHOCARBAMOL [Concomitant]
     Dosage: 500 mg, UNK

REACTIONS (4)
  - Nasopharyngitis [Unknown]
  - Injection site urticaria [Unknown]
  - Injection site pain [Unknown]
  - Injection site reaction [Unknown]
